FAERS Safety Report 5486303-0 (Version None)
Quarter: 2007Q4

REPORT INFORMATION
  Report Type: 
  Country: None (occurrence: None)
  Receive Date: 20071016
  Receipt Date: 20071009
  Transmission Date: 20080405
  Serious: Yes (Hospitalization)
  Sender: FDA-Public Use
  Company Number: PHBS2007TR15865

PATIENT
  Age: 36 Year
  Sex: Female

DRUGS (6)
  1. TEGRETOL CR [Suspect]
     Indication: NERVE INJURY
     Dosage: 0.5 DF, QD
     Route: 048
     Dates: start: 20070401, end: 20070101
  2. TEGRETOL CR [Suspect]
     Dosage: 0.5 DF, BID
     Route: 048
     Dates: start: 20070101, end: 20070101
  3. TEGRETOL CR [Suspect]
     Dosage: 0.5 DF, TID
     Route: 048
     Dates: start: 20070101, end: 20070101
  4. TEGRETOL CR [Suspect]
     Dosage: 1 DF, TID
     Route: 048
     Dates: start: 20070101, end: 20070101
  5. TEGRETOL CR [Suspect]
     Dosage: 0.5 DF, UNK
     Dates: start: 20070101, end: 20070101
  6. LAROXYL [Concomitant]

REACTIONS (3)
  - LYMPHADENOPATHY [None]
  - PYREXIA [None]
  - RASH [None]
